FAERS Safety Report 11882420 (Version 2)
Quarter: 2016Q1

REPORT INFORMATION
  Report Type: Spontaneous
  Country: US (occurrence: US)
  Receive Date: 20151231
  Receipt Date: 20160211
  Transmission Date: 20160526
  Serious: No
  Sender: FDA-Public Use
  Company Number: US-PFIZER INC-2015430824

PATIENT
  Sex: Female

DRUGS (1)
  1. ZYVOX [Suspect]
     Active Substance: LINEZOLID
     Dosage: 600 MG, 2X/DAY
     Route: 048
     Dates: end: 20151203

REACTIONS (5)
  - Myalgia [Unknown]
  - Asthenia [Not Recovered/Not Resolved]
  - Arthralgia [Unknown]
  - Stomatitis [Unknown]
  - Hypotension [Unknown]
